FAERS Safety Report 9652501 (Version 4)
Quarter: 2014Q3

REPORT INFORMATION
  Report Type: Report from Study
  Country: US (occurrence: US)
  Receive Date: 20131029
  Receipt Date: 20140828
  Transmission Date: 20150326
  Serious: Yes (Other)
  Sender: FDA-Public Use
  Company Number: US-ACTELION-A-NJ2012-65373

PATIENT
  Age: 78 Year
  Sex: Female

DRUGS (2)
  1. ASPIRIN. [Concomitant]
     Active Substance: ASPIRIN
  2. TRACLEER [Suspect]
     Active Substance: BOSENTAN\BOSENTAN MONOHYDRATE
     Indication: PULMONARY ARTERIAL HYPERTENSION
     Dosage: UNK
     Route: 048
     Dates: start: 20030227

REACTIONS (8)
  - Seasonal allergy [Unknown]
  - Gastrointestinal disorder [Unknown]
  - Dyspnoea [Unknown]
  - Fall [Unknown]
  - Nasopharyngitis [Unknown]
  - Limb crushing injury [Unknown]
  - Dysphonia [Unknown]
  - Sleep apnoea syndrome [Unknown]
